FAERS Safety Report 17545183 (Version 1)
Quarter: 2020Q1

REPORT INFORMATION
  Report Type: Spontaneous
  Country: CA (occurrence: CA)
  Receive Date: 20200316
  Receipt Date: 20200316
  Transmission Date: 20200409
  Serious: Yes (Life-Threatening, Hospitalization, Other)
  Sender: FDA-Public Use
  Company Number: CA-B.I. PHARMACEUTICALS,INC./RIDGEFIELD-2020-BI-014494

PATIENT
  Age: 76 Year
  Sex: Female

DRUGS (10)
  1. ACETAMINOPHEN;CODEINE PHOSPHATE [Concomitant]
     Active Substance: ACETAMINOPHEN\CODEINE PHOSPHATE
     Indication: PRODUCT USED FOR UNKNOWN INDICATION
     Route: 065
  2. HYDROCHLOROTHIAZIDE. [Concomitant]
     Active Substance: HYDROCHLOROTHIAZIDE
     Indication: PRODUCT USED FOR UNKNOWN INDICATION
     Route: 065
  3. AMINOPHYLLINE. [Suspect]
     Active Substance: AMINOPHYLLINE
     Indication: PRODUCT USED FOR UNKNOWN INDICATION
     Route: 042
  4. TETROFOSMIN;ZINC CHLORIDE [Suspect]
     Active Substance: TETROFOSMIN\ZINC CHLORIDE
     Indication: SURGERY
     Route: 042
  5. TETROFOSMIN;ZINC CHLORIDE [Suspect]
     Active Substance: TETROFOSMIN\ZINC CHLORIDE
     Indication: SCAN MYOCARDIAL PERFUSION
     Route: 042
  6. ESOMEPRAZOLE MAGNESIUM TRIHYDRATE [Concomitant]
     Active Substance: ESOMEPRAZOLE MAGNESIUM
     Indication: PRODUCT USED FOR UNKNOWN INDICATION
     Route: 065
  7. SYNTHROID [Concomitant]
     Active Substance: LEVOTHYROXINE SODIUM
     Indication: PRODUCT USED FOR UNKNOWN INDICATION
     Route: 065
  8. PERSANTINE [Suspect]
     Active Substance: DIPYRIDAMOLE
     Indication: PRODUCT USED FOR UNKNOWN INDICATION
     Route: 042
  9. TECHNETIUM TC 99M [Suspect]
     Active Substance: TECHNETIUM TC-99M
     Indication: CHEST PAIN
     Route: 042
  10. TETROFOSMIN;ZINC CHLORIDE [Suspect]
     Active Substance: TETROFOSMIN\ZINC CHLORIDE
     Indication: CHEST PAIN
     Route: 042

REACTIONS (11)
  - Nausea [Not Recovered/Not Resolved]
  - Skin discolouration [Not Recovered/Not Resolved]
  - Injection site necrosis [Not Recovered/Not Resolved]
  - Renal failure [Not Recovered/Not Resolved]
  - Vomiting [Not Recovered/Not Resolved]
  - Injection site discolouration [Not Recovered/Not Resolved]
  - Diarrhoea [Not Recovered/Not Resolved]
  - Dizziness [Not Recovered/Not Resolved]
  - Blister [Not Recovered/Not Resolved]
  - Toe amputation [Not Recovered/Not Resolved]
  - Joint range of motion decreased [Not Recovered/Not Resolved]
